FAERS Safety Report 15545680 (Version 9)
Quarter: 2019Q1

REPORT INFORMATION
  Report Type: Report from Study
  Country: US (occurrence: US)
  Receive Date: 20181024
  Receipt Date: 20190212
  Transmission Date: 20190417
  Serious: Yes (Hospitalization)
  Sender: FDA-Public Use
  Company Number: US-ROCHE-2175286

PATIENT
  Age: 29 Year
  Sex: Female
  Weight: 79 kg

DRUGS (53)
  1. ASA [Concomitant]
     Active Substance: ASPIRIN
  2. SULFAMETHOXAZOLE/TRIMETHOPRIM [Concomitant]
     Active Substance: SULFAMETHOXAZOLE\TRIMETHOPRIM
     Route: 048
     Dates: start: 20170613, end: 20170928
  3. GABAPENTIN. [Concomitant]
     Active Substance: GABAPENTIN
     Indication: NECK PAIN
     Route: 048
     Dates: start: 201505
  4. DAPSONE. [Concomitant]
     Active Substance: DAPSONE
     Route: 048
     Dates: start: 20180125, end: 20180220
  5. DAPSONE. [Concomitant]
     Active Substance: DAPSONE
     Route: 048
     Dates: start: 20180221, end: 20180404
  6. METHYLPREDNISOLONE. [Suspect]
     Active Substance: METHYLPREDNISOLONE
     Indication: SYSTEMIC LUPUS ERYTHEMATOSUS
     Dosage: METHYLPREDNISONE LAST DOSE PRIOR TO SAE 27/APR/2017
     Route: 042
     Dates: start: 20170411, end: 20170411
  7. CEFAZOLIN [Concomitant]
     Active Substance: CEFAZOLIN
  8. PREVNAR [Concomitant]
     Active Substance: PNEUMOCOCCAL 7-VALENT CONJUGATE VACCINE (DIPHTHERIA CRM197 PROTEIN)
     Route: 065
     Dates: start: 20180714
  9. ERGOCALCIFEROL. [Concomitant]
     Active Substance: ERGOCALCIFEROL
     Indication: VITAMIN D DEFICIENCY
     Route: 048
     Dates: start: 20170327
  10. HYDROXYCHLOROQUINE [Concomitant]
     Active Substance: HYDROXYCHLOROQUINE
     Indication: SYSTEMIC LUPUS ERYTHEMATOSUS
     Route: 048
     Dates: start: 20121003, end: 20170411
  11. LISINOPRIL. [Concomitant]
     Active Substance: LISINOPRIL
     Route: 048
     Dates: start: 20170411, end: 20170418
  12. FOLIC ACID. [Concomitant]
     Active Substance: FOLIC ACID
  13. HYDROXYCHLOROQUINE [Concomitant]
     Active Substance: HYDROXYCHLOROQUINE
     Route: 048
     Dates: start: 20170404, end: 20180627
  14. SUMATRIPTAN. [Concomitant]
     Active Substance: SUMATRIPTAN
     Indication: MIGRAINE
     Route: 048
     Dates: start: 2015
  15. SPIRONOLACTONE. [Concomitant]
     Active Substance: SPIRONOLACTONE
     Indication: HYPERTENSION
  16. CARVEDILOL. [Concomitant]
     Active Substance: CARVEDILOL
     Indication: HYPERTENSION
     Route: 048
     Dates: start: 20170206, end: 20170418
  17. ONDANSETRON [Concomitant]
     Active Substance: ONDANSETRON
     Route: 042
     Dates: start: 20170427, end: 20170427
  18. DAPSONE. [Concomitant]
     Active Substance: DAPSONE
     Indication: ACQUIRED EPIDERMOLYSIS BULLOSA
     Route: 048
     Dates: start: 20171219, end: 20180108
  19. DAPSONE. [Concomitant]
     Active Substance: DAPSONE
     Route: 048
     Dates: start: 20180110, end: 20180124
  20. SERTRALINE [Concomitant]
     Active Substance: SERTRALINE HYDROCHLORIDE
     Indication: DEPRESSION
     Route: 048
     Dates: start: 20171129, end: 20180627
  21. CYCLOPHOSPHAMIDE. [Suspect]
     Active Substance: CYCLOPHOSPHAMIDE
     Route: 042
     Dates: start: 20170427, end: 20170427
  22. METHYLPREDNISOLONE. [Suspect]
     Active Substance: METHYLPREDNISOLONE
     Route: 042
     Dates: start: 20170427, end: 20170427
  23. POTASSIUM CHLORIDE. [Concomitant]
     Active Substance: POTASSIUM CHLORIDE
     Indication: HYPOKALAEMIA
     Route: 065
     Dates: start: 2014
  24. MUCINEX [Concomitant]
     Active Substance: GUAIFENESIN
     Indication: UPPER RESPIRATORY TRACT INFECTION
     Route: 048
     Dates: start: 20170920, end: 20170920
  25. PHENERGAN [Concomitant]
     Active Substance: PROMETHAZINE HYDROCHLORIDE
     Route: 048
     Dates: start: 20160719, end: 20170621
  26. PREDNISONE. [Suspect]
     Active Substance: PREDNISONE
     Indication: SYSTEMIC LUPUS ERYTHEMATOSUS
     Dosage: DATE OF LAST DOSE, PRIOR TO ONSET OF SAE 24/OCT/2017 10 MG
     Route: 048
     Dates: start: 20170325
  27. VANCOMYCINE [Suspect]
     Active Substance: VANCOMYCIN
     Indication: STOMATITIS
     Dosage: TAKEN FO 2.5 WEEKS
     Route: 048
     Dates: start: 201702, end: 201702
  28. CEFEPIM [Concomitant]
     Active Substance: CEFEPIME HYDROCHLORIDE
  29. BUMETANIDE. [Concomitant]
     Active Substance: BUMETANIDE
     Indication: LUPUS NEPHRITIS
     Route: 048
     Dates: start: 2014
  30. DIAZEPAM. [Concomitant]
     Active Substance: DIAZEPAM
     Indication: ANXIETY
     Route: 048
     Dates: start: 2014
  31. SPIRONOLACTONE. [Concomitant]
     Active Substance: SPIRONOLACTONE
     Indication: FLUID RETENTION
     Route: 048
     Dates: start: 2014
  32. LISINOPRIL. [Concomitant]
     Active Substance: LISINOPRIL
     Indication: HYPERTENSION
     Route: 048
     Dates: start: 20170523
  33. SULFAMETHOXAZOLE/TRIMETHOPRIM [Concomitant]
     Active Substance: SULFAMETHOXAZOLE\TRIMETHOPRIM
     Route: 048
     Dates: start: 20170411, end: 20170612
  34. MESNA. [Concomitant]
     Active Substance: MESNA
     Route: 042
     Dates: start: 20170411, end: 20170411
  35. MESNA. [Concomitant]
     Active Substance: MESNA
     Route: 042
     Dates: start: 20170427, end: 20170427
  36. COLCRYS [Concomitant]
     Active Substance: COLCHICINE
     Indication: BLISTER
     Route: 048
     Dates: start: 20171113, end: 20171217
  37. HYDROCODONE BITARTRATE AND ACETAMINOPHEN [Concomitant]
     Active Substance: ACETAMINOPHEN\HYDROCODONE BITARTRATE
     Indication: BACK PAIN
     Route: 048
  38. CYCLOPHOSPHAMIDE. [Suspect]
     Active Substance: CYCLOPHOSPHAMIDE
     Indication: SYSTEMIC LUPUS ERYTHEMATOSUS
     Dosage: DATE OF LAST DOSE, PRIOR TO ONSET OF SAE 27/APR/2017, 750 MG
     Route: 042
     Dates: start: 20170411, end: 20170411
  39. DIPHENHYDRAMINE. [Concomitant]
     Active Substance: DIPHENHYDRAMINE
     Route: 065
  40. LABETALOL [Concomitant]
     Active Substance: LABETALOL\LABETALOL HYDROCHLORIDE
     Route: 065
  41. MYFORTIC [Concomitant]
     Active Substance: MYCOPHENOLATE SODIUM
     Indication: SYSTEMIC LUPUS ERYTHEMATOSUS
     Route: 048
     Dates: start: 2014, end: 20170410
  42. LISINOPRIL. [Concomitant]
     Active Substance: LISINOPRIL
     Route: 048
     Dates: start: 201511, end: 20170206
  43. TOBREX [Concomitant]
     Active Substance: TOBRAMYCIN
     Indication: CONJUNCTIVITIS
     Dosage: 0.3 DROPS
     Route: 031
     Dates: start: 20170922, end: 20171003
  44. RITUXIMAB. [Suspect]
     Active Substance: RITUXIMAB
     Route: 042
     Dates: start: 20170427, end: 20170427
  45. AMLODIPIN [Concomitant]
     Active Substance: AMLODIPINE BESYLATE
     Route: 065
  46. TACROLIMUS. [Concomitant]
     Active Substance: TACROLIMUS
     Indication: SYSTEMIC LUPUS ERYTHEMATOSUS
     Route: 048
     Dates: start: 2016, end: 20170410
  47. KCL [Concomitant]
     Active Substance: POTASSIUM CHLORIDE
     Indication: HYPOKALAEMIA
     Route: 048
     Dates: start: 20170427, end: 20170427
  48. DAPSONE. [Concomitant]
     Active Substance: DAPSONE
     Route: 048
     Dates: start: 20180404, end: 20180413
  49. HYDROCODONE BITARTRATE AND ACETAMINOPHEN [Concomitant]
     Active Substance: ACETAMINOPHEN\HYDROCODONE BITARTRATE
     Route: 048
  50. RITUXIMAB. [Suspect]
     Active Substance: RITUXIMAB
     Indication: SYSTEMIC LUPUS ERYTHEMATOSUS
     Dosage: DATE OF LAST DOSE, PRIOR TO ONSET OF SAE 27/APR/2017, LAST DOSE TAKEN, PRIOR TO SAE 1000 MG
     Route: 042
     Dates: start: 20170411, end: 20170411
  51. PARACETAMOL [Concomitant]
     Active Substance: ACETAMINOPHEN
     Route: 065
  52. FERROUS SULFATE. [Concomitant]
     Active Substance: FERROUS SULFATE
     Indication: ANAEMIA
     Route: 048
     Dates: start: 20170223, end: 20170411
  53. OMEPRAZOLE. [Concomitant]
     Active Substance: OMEPRAZOLE
     Route: 048
     Dates: start: 2014

REACTIONS (6)
  - Epistaxis [Recovered/Resolved]
  - Haematemesis [Recovered/Resolved]
  - Haemoptysis [Recovered/Resolved]
  - Chest pain [Recovered/Resolved]
  - Pseudomonal bacteraemia [Recovered/Resolved]
  - Pyrexia [Recovered/Resolved]

NARRATIVE: CASE EVENT DATE: 20180629
